FAERS Safety Report 15305056 (Version 1)
Quarter: 2018Q3

REPORT INFORMATION
  Report Type: Spontaneous
  Country: US (occurrence: US)
  Receive Date: 20180810
  Receipt Date: 20180810
  Transmission Date: 20181010
  Serious: No
  Sender: FDA-Public Use
  Company Number: None

PATIENT
  Sex: Female

DRUGS (1)
  1. ESBRIET [Suspect]
     Active Substance: PIRFENIDONE
     Dosage: ?          OTHER FREQUENCY:3 TIMES A DAILY ;?
     Route: 048
     Dates: start: 20171114

REACTIONS (2)
  - Decreased appetite [None]
  - Wrong technique in product usage process [None]
